FAERS Safety Report 22940388 (Version 3)
Quarter: 2024Q2

REPORT INFORMATION
  Report Type: Report from Study
  Country: CA (occurrence: CA)
  Receive Date: 20230913
  Receipt Date: 20240605
  Transmission Date: 20240716
  Serious: Yes (Other)
  Sender: FDA-Public Use
  Company Number: CA-TAKEDA-2023TUS088573

PATIENT
  Age: 29 Year
  Sex: Female

DRUGS (12)
  1. VEDOLIZUMAB [Suspect]
     Active Substance: VEDOLIZUMAB
     Indication: Crohn^s disease
     Dosage: 300 MILLIGRAM
     Route: 042
     Dates: start: 20200108
  2. VEDOLIZUMAB [Suspect]
     Active Substance: VEDOLIZUMAB
     Dosage: 300 MILLIGRAM
     Route: 042
  3. VEDOLIZUMAB [Suspect]
     Active Substance: VEDOLIZUMAB
     Dosage: 300 MILLIGRAM, Q6WEEKS
     Route: 042
     Dates: start: 20240531
  4. PREDNISONE [Concomitant]
     Active Substance: PREDNISONE
     Dosage: UNK
  5. TESTOSTERONE [Concomitant]
     Active Substance: TESTOSTERONE
     Dosage: UNK
  6. OLANZAPINE [Concomitant]
     Active Substance: OLANZAPINE
     Dosage: UNK
  7. AMITRIPTYLINE [Concomitant]
     Active Substance: AMITRIPTYLINE
     Dosage: UNK
  8. VAGIFEM [Concomitant]
     Active Substance: ESTRADIOL
     Dosage: UNK
  9. MELATONIN [Concomitant]
     Active Substance: MELATONIN
     Dosage: UNK
  10. METOPROLOL [Concomitant]
     Active Substance: METOPROLOL
     Dosage: UNK
  11. FINASTERIDE [Concomitant]
     Active Substance: FINASTERIDE
     Dosage: UNK
  12. PROPRANOLOL [Concomitant]
     Active Substance: PROPRANOLOL HYDROCHLORIDE
     Dosage: 10 MILLIGRAM, QID

REACTIONS (4)
  - Haematochezia [Recovering/Resolving]
  - Therapy non-responder [Unknown]
  - Off label use [Unknown]
  - Constipation [Recovering/Resolving]

NARRATIVE: CASE EVENT DATE: 20230816
